FAERS Safety Report 15275265 (Version 1)
Quarter: 2018Q3

REPORT INFORMATION
  Report Type: Spontaneous
  Country: JP (occurrence: JP)
  Receive Date: 20180814
  Receipt Date: 20180814
  Transmission Date: 20181010
  Serious: Yes (Other)
  Sender: FDA-Public Use
  Company Number: JP-ROCHE-2165622

PATIENT
  Age: 72 Year
  Sex: Female

DRUGS (7)
  1. AVASTIN [Suspect]
     Active Substance: BEVACIZUMAB
     Dosage: DOSE INTERVAL UNCERTAINTY 3 COURSE
     Route: 041
     Dates: start: 2017, end: 20170312
  2. ELPLAT [Concomitant]
     Active Substance: OXALIPLATIN
     Dosage: DOSAGE IS UNCERTAIN. ?ADMINISTRATION PERIOD: 5 COURSE + 5 COURSE
     Route: 041
     Dates: start: 20170104
  3. AVASTIN [Suspect]
     Active Substance: BEVACIZUMAB
     Dosage: TOTAL 5 CYCLES OF CHEMOTHERAPY WITH BEVACIZUMAB HAVING DOSE 360 MG, 360MG, 355 MG, 355 MG, AND 355 M
     Route: 041
     Dates: start: 20170104, end: 20170321
  4. FLUOROURACIL. [Concomitant]
     Active Substance: FLUOROURACIL
     Indication: SMALL INTESTINE CARCINOMA
     Dosage: DOSAGE IS UNCERTAIN. ?ADMINISTRATION PERIOD: 5 COURSE + 5 COURSE
     Route: 040
     Dates: start: 20170104
  5. FLUOROURACIL. [Concomitant]
     Active Substance: FLUOROURACIL
     Dosage: DOSAGE IS UNCERTAIN. ?ADMINISTRATION PERIOD: 5 COURSE + 5 COURSE
     Route: 041
     Dates: start: 20170104
  6. AVASTIN [Suspect]
     Active Substance: BEVACIZUMAB
     Indication: SMALL INTESTINE CARCINOMA
     Dosage: DOSE INTERVAL UNCERTAINTY 2 COURSE
     Route: 041
     Dates: start: 20170114, end: 2017
  7. CALCIUM LEVOFOLINATE [Concomitant]
     Active Substance: LEVOLEUCOVORIN CALCIUM
     Indication: SMALL INTESTINE CARCINOMA
     Dosage: DOSAGE IS UNCERTAIN. ?ADMINISTRATION PERIOD: 5 COURSE + 5 COURSE
     Route: 041
     Dates: start: 20170104

REACTIONS (4)
  - Alopecia [Unknown]
  - Off label use [Unknown]
  - Bone marrow failure [Unknown]
  - Proteinuria [Recovering/Resolving]

NARRATIVE: CASE EVENT DATE: 2017
